FAERS Safety Report 4991399-6 (Version None)
Quarter: 2006Q2

REPORT INFORMATION
  Report Type: 
  Country: None (occurrence: None)
  Receive Date: 20060501
  Receipt Date: 20060418
  Transmission Date: 20061013
  Serious: Yes (Other)
  Sender: FDA-Public Use
  Company Number: B0421323A

PATIENT
  Age: 61 Year
  Sex: Female
  Weight: 54.8852 kg

DRUGS (2)
  1. FLOVENT [Suspect]
     Indication: ASTHMA
     Dosage: 250 MCG / TWICE PER DAY / INHALED
     Route: 055
  2. SEREVENT [Suspect]
     Indication: ASTHMA
     Dosage: 50 MCG / TWICE PER DAY / INHALED
     Route: 055

REACTIONS (10)
  - ANOREXIA [None]
  - BLOOD CORTISOL DECREASED [None]
  - BLOOD GROWTH HORMONE DECREASED [None]
  - DIZZINESS [None]
  - FATIGUE [None]
  - HYPOGLYCAEMIA [None]
  - HYPOTHALAMO-PITUITARY DISORDERS [None]
  - INSULIN TOLERANCE TEST ABNORMAL [None]
  - NEUROGLYCOPENIA [None]
  - WEIGHT DECREASED [None]
